FAERS Safety Report 7909223 (Version 3)
Quarter: 2012Q4

REPORT INFORMATION
  Report Type: 
  Country: US (occurrence: US)
  Receive Date: 20110421
  Receipt Date: 20121018
  Transmission Date: 20130627
  Serious: Yes (Other)
  Sender: FDA-Public Use
  Company Number: US-ASTRAZENECA-2010SE56987

PATIENT
  Age: 69 Year
  Sex: Female

DRUGS (2)
  1. TOPROL XL [Suspect]
     Route: 048
  2. CRESTOR [Suspect]
     Route: 048

REACTIONS (6)
  - Renal failure [Unknown]
  - Cardiac failure [Unknown]
  - Diabetes mellitus [Unknown]
  - Oropharyngeal pain [Unknown]
  - Dysphonia [Unknown]
  - Visual impairment [Unknown]
